FAERS Safety Report 25153583 (Version 3)
Quarter: 2025Q2

REPORT INFORMATION
  Report Type: Spontaneous
  Country: IT (occurrence: IT)
  Receive Date: 20250403
  Receipt Date: 20250529
  Transmission Date: 20250717
  Serious: Yes (Hospitalization)
  Sender: ROCHE
  Company Number: None

PATIENT
  Age: 72 Year
  Sex: Male
  Weight: 70.18 kg

DRUGS (18)
  1. TRASTUZUMAB [Suspect]
     Active Substance: TRASTUZUMAB
     Indication: HER2 positive colorectal cancer
     Dosage: 8 MG/KG, Q3W SINGLE LOADING DOSE 8 MG/KG IV ON C1 D1
     Route: 042
     Dates: start: 20240523, end: 20240523
  2. TRASTUZUMAB [Suspect]
     Active Substance: TRASTUZUMAB
     Route: 042
     Dates: start: 20240523, end: 20240523
  3. LEVOLEUCOVORIN CALCIUM [Suspect]
     Active Substance: LEVOLEUCOVORIN CALCIUM
     Indication: HER2 positive colorectal cancer
     Dosage: 372 MG, EVERY 2 WEEKS ON DAYS 1, 15 AND 29 OF EACH 6-WEEK CYCLE
     Route: 042
     Dates: start: 20240523, end: 20240624
  4. LEVOLEUCOVORIN CALCIUM [Suspect]
     Active Substance: LEVOLEUCOVORIN CALCIUM
     Route: 042
     Dates: start: 20240523, end: 20240624
  5. OXALIPLATIN [Suspect]
     Active Substance: OXALIPLATIN
     Indication: HER2 positive colorectal cancer
     Dosage: 85 MG/M2 EVERY 2 WEEKS ON DAYS 1, 15 AND 29 OF EACH 6-WEEK (42-DAY) CYCLE
     Route: 042
     Dates: start: 20240523, end: 20240618
  6. OXALIPLATIN [Suspect]
     Active Substance: OXALIPLATIN
     Route: 065
  7. OXALIPLATIN [Suspect]
     Active Substance: OXALIPLATIN
     Route: 042
     Dates: start: 20240523, end: 20240624
  8. LEVOLEUCOVORIN [Suspect]
     Active Substance: LEVOLEUCOVORIN
     Indication: HER2 positive colorectal cancer
     Dosage: 200 MG/M2 EVERY 2 WEEKS ON DAYS 1, 15 AND 29 OF EACH 6-WEEK CYCLE
     Route: 042
     Dates: start: 20240523, end: 20240618
  9. FLUOROURACIL [Suspect]
     Active Substance: FLUOROURACIL
     Indication: HER2 positive colorectal cancer
     Route: 042
     Dates: start: 20240523, end: 20240618
  10. FLUOROURACIL [Suspect]
     Active Substance: FLUOROURACIL
     Route: 042
     Dates: start: 20240523, end: 20240624
  11. FLUOROURACIL [Suspect]
     Active Substance: FLUOROURACIL
     Route: 042
     Dates: start: 20240523, end: 20240624
  12. TUCATINIB [Suspect]
     Active Substance: TUCATINIB
     Indication: HER2 positive colorectal cancer
     Dosage: 300 MG, BID
     Route: 048
     Dates: start: 20240523, end: 20240623
  13. TUCATINIB [Suspect]
     Active Substance: TUCATINIB
     Dosage: 8 MG/KG Q3W SINGLE LOADING DOSE 8 MG/KG IV ON C1 D1
     Route: 048
  14. TUCATINIB [Suspect]
     Active Substance: TUCATINIB
     Route: 065
  15. LOPERAMIDE [Suspect]
     Active Substance: LOPERAMIDE
     Indication: HER2 positive colorectal cancer
     Dosage: 4 MG, TID DAYS 1 TO 14
     Route: 065
     Dates: start: 20240523, end: 20240623
  16. LOPERAMIDE [Suspect]
     Active Substance: LOPERAMIDE
     Dosage: 4 MG, BID DAY 15 THROUGH DAY 42
     Route: 065
  17. METFORMIN [Concomitant]
     Active Substance: METFORMIN HYDROCHLORIDE
     Indication: Product used for unknown indication
     Route: 065
     Dates: start: 2014, end: 20240624
  18. EMPAGLIFLOZIN [Concomitant]
     Active Substance: EMPAGLIFLOZIN
     Indication: Product used for unknown indication
     Route: 065
     Dates: start: 2014, end: 20240624

REACTIONS (3)
  - Acute kidney injury [Recovered/Resolved]
  - Nausea [Recovered/Resolved]
  - Blood creatinine increased [Unknown]

NARRATIVE: CASE EVENT DATE: 20240527
